FAERS Safety Report 7078538-0 (Version None)
Quarter: 2010Q4

REPORT INFORMATION
  Report Type: 
  Country: None (occurrence: None)
  Receive Date: 20101102
  Receipt Date: 20101021
  Transmission Date: 20110411
  Serious: Yes (Hospitalization)
  Sender: FDA-Public Use
  Company Number: PHHY2010CA62811

PATIENT
  Age: 76 Year
  Sex: Female

DRUGS (12)
  1. ACLASTA [Suspect]
     Indication: OSTEOPOROSIS
     Dosage: 5 MG/ 100 ML
     Route: 042
     Dates: start: 20100831
  2. ACLASTA [Suspect]
     Indication: OSTEOPENIA
  3. PLAVIX [Concomitant]
     Dosage: 1 DF, QD
  4. SYNTHROID [Concomitant]
     Dosage: 150 UG, QD
  5. CALCIUM [Concomitant]
  6. VITAMIN B [Concomitant]
     Dosage: 75 ONE DAILY
  7. VITAMIN D [Concomitant]
     Dosage: 1000 IU, QD
  8. CORTEF [Concomitant]
  9. VENTOLIN [Concomitant]
  10. ATROVENT [Concomitant]
  11. LACTULOSE [Concomitant]
  12. SYMBICORT [Concomitant]

REACTIONS (19)
  - AMNESIA [None]
  - ARTHRALGIA [None]
  - ASTHENIA [None]
  - CHILLS [None]
  - CYSTITIS [None]
  - DYSPNOEA [None]
  - FATIGUE [None]
  - FLUSHING [None]
  - HYPOTENSION [None]
  - INFLUENZA LIKE ILLNESS [None]
  - MALAISE [None]
  - MYALGIA [None]
  - NAUSEA [None]
  - PYREXIA [None]
  - RASH [None]
  - SYSTEMIC INFLAMMATORY RESPONSE SYNDROME [None]
  - TREMOR [None]
  - URTICARIA [None]
  - VOMITING [None]
